FAERS Safety Report 23317200 (Version 3)
Quarter: 2024Q4

REPORT INFORMATION
  Report Type: Spontaneous
  Country: US (occurrence: US)
  Receive Date: 20231219
  Receipt Date: 20241017
  Transmission Date: 20250115
  Serious: No
  Sender: ROCHE
  Company Number: US-ROCHE-3377294

PATIENT
  Age: 17 Year
  Sex: Male

DRUGS (2)
  1. HEMLIBRA [Suspect]
     Active Substance: EMICIZUMAB-KXWH
     Indication: Factor VIII deficiency
     Dosage: INJECT 1ML FROM 1- 150MG VIAL AND INJECT 0.8ML FROM 2- 60MG VIAL.
     Route: 058
     Dates: start: 201903
  2. HEMLIBRA [Suspect]
     Active Substance: EMICIZUMAB-KXWH
     Dosage: INJECT 1ML FROM 1- 150MG VIAL AND INJECT 0.7ML FROM 1-105MG VIAL.
     Route: 058
     Dates: start: 201903

REACTIONS (1)
  - Blood urine present [Unknown]

NARRATIVE: CASE EVENT DATE: 20230617
